FAERS Safety Report 23380901 (Version 2)
Quarter: 2024Q1

REPORT INFORMATION
  Report Type: Spontaneous
  Country: MY (occurrence: MY)
  Receive Date: 20240109
  Receipt Date: 20240308
  Transmission Date: 20240410
  Serious: Yes (Hospitalization)
  Sender: FDA-Public Use
  Company Number: MY-BIOGEN-2024BI01244025

PATIENT
  Age: 3 Year
  Sex: Male

DRUGS (2)
  1. SPINRAZA [Suspect]
     Active Substance: NUSINERSEN
     Indication: Spinal muscular atrophy
     Route: 050
     Dates: start: 20231214, end: 20231214
  2. SPINRAZA [Suspect]
     Active Substance: NUSINERSEN
     Route: 050
     Dates: start: 20240206

REACTIONS (1)
  - Pneumonia [Recovered/Resolved]

NARRATIVE: CASE EVENT DATE: 20231221
